FAERS Safety Report 6443691-6 (Version None)
Quarter: 2009Q4

REPORT INFORMATION
  Report Type: 
  Country: None (occurrence: None)
  Receive Date: 20091117
  Receipt Date: 20091110
  Transmission Date: 20100525
  Serious: Yes (Other)
  Sender: FDA-Public Use
  Company Number: US-ABBOTT-09P-163-0601590-00

PATIENT
  Sex: Male
  Weight: 83.536 kg

DRUGS (3)
  1. KALETRA [Suspect]
     Indication: HIV TEST POSITIVE
     Route: 048
     Dates: start: 20030101
  2. TRUVADA [Concomitant]
     Indication: HIV TEST POSITIVE
     Dosage: 200/50
     Route: 048
  3. UNKNOWN PAIN MEDICATIONS [Concomitant]
     Indication: DRUG USE FOR UNKNOWN INDICATION

REACTIONS (2)
  - HEAD AND NECK CANCER [None]
  - LYMPHADENOPATHY [None]
